FAERS Safety Report 23290345 (Version 4)
Quarter: 2025Q4

REPORT INFORMATION
  Report Type: Report from Study
  Country: US (occurrence: US)
  Receive Date: 20231213
  Receipt Date: 20251001
  Transmission Date: 20260117
  Serious: Yes (Hospitalization)
  Sender: JAZZ
  Company Number: US-JAZZ PHARMACEUTICALS-2023-US-024565

PATIENT
  Sex: Male

DRUGS (5)
  1. EPIDIOLEX [Suspect]
     Active Substance: CANNABIDIOL
     Indication: Lennox-Gastaut syndrome
     Dosage: 5.7 MILLILITER, BID
     Dates: start: 202008
  2. EPIDIOLEX [Suspect]
     Active Substance: CANNABIDIOL
     Dosage: 5.7 MILLILITER, BID
     Dates: start: 202009
  3. EPIDIOLEX [Suspect]
     Active Substance: CANNABIDIOL
     Dosage: 5.7 MILLILITER, BID, G TUBE
     Dates: start: 202009
  4. EPIDIOLEX [Suspect]
     Active Substance: CANNABIDIOL
     Dosage: 6.6 MILLILITER, BID, G TUBE
     Dates: start: 202009
  5. VIJOICE [Concomitant]
     Active Substance: ALPELISIB
     Indication: Product used for unknown indication
     Dosage: UNK

REACTIONS (4)
  - Hospitalisation [Unknown]
  - Hospitalisation [Unknown]
  - Hospitalisation [Unknown]
  - Emergency care [Unknown]
